FAERS Safety Report 10645280 (Version 1)
Quarter: 2014Q4

REPORT INFORMATION
  Report Type: Spontaneous
  Country: US (occurrence: None)
  Receive Date: 20141210
  Receipt Date: 20141210
  Transmission Date: 20150529
  Serious: No
  Sender: FDA-Public Use
  Company Number: None

PATIENT
  Age: 12 Year
  Sex: Male
  Weight: 47.3 kg

DRUGS (5)
  1. ENBREL [Suspect]
     Active Substance: ETANERCEPT
     Indication: JUVENILE IDIOPATHIC ARTHRITIS
     Dosage: ENBREL 15MG  TWICE A WEEK SUBCUT
     Route: 058
     Dates: start: 201404
  2. LEUCOVORIN [Concomitant]
     Active Substance: LEUCOVORIN
  3. ZOFRAN [Concomitant]
     Active Substance: ONDANSETRON HYDROCHLORIDE
  4. NAPROSYN [Suspect]
     Active Substance: NAPROXEN
  5. METHOTREXATE [Concomitant]
     Active Substance: METHOTREXATE

REACTIONS (4)
  - Deafness unilateral [None]
  - Deafness neurosensory [None]
  - Ear infection [None]
  - Infection [None]

NARRATIVE: CASE EVENT DATE: 20140523
